FAERS Safety Report 6932278-4 (Version None)
Quarter: 2010Q3

REPORT INFORMATION
  Report Type: 
  Country: None (occurrence: None)
  Receive Date: 20100819
  Receipt Date: 20100803
  Transmission Date: 20110219
  Serious: Yes (Other)
  Sender: FDA-Public Use
  Company Number: GB-ROCHE-719754

PATIENT
  Age: 52 Year
  Sex: Female

DRUGS (13)
  1. CELLCEPT [Suspect]
     Indication: IMMUNOSUPPRESSION
     Dosage: DOSE REDUCED
     Route: 065
  2. CELLCEPT [Suspect]
     Route: 065
  3. SIROLIMUS [Suspect]
     Indication: IMMUNOSUPPRESSION
     Dosage: DOSE WAS DECREASED GRADUALLY.
     Route: 065
  4. SIROLIMUS [Suspect]
     Dosage: DISCONTINUED.
     Route: 065
  5. TACROLIMUS [Suspect]
     Indication: IMMUNOSUPPRESSION
     Dosage: DRUG WITHDRAWN
     Route: 065
  6. TACROLIMUS [Suspect]
     Route: 065
  7. BASILIXIMAB [Concomitant]
  8. FAMOTIDINE [Concomitant]
  9. HYDRALAZINE [Concomitant]
  10. METOPROLOL [Concomitant]
  11. SIMVASTATIN [Concomitant]
  12. TRIMETHOPRIM [Concomitant]
  13. VALGANCICLOVIR [Concomitant]

REACTIONS (1)
  - BONE MARROW OEDEMA [None]
